FAERS Safety Report 8823429 (Version 2)
Quarter: 2013Q1

REPORT INFORMATION
  Report Type: Spontaneous
  Country: US (occurrence: US)
  Receive Date: 20121003
  Receipt Date: 20130204
  Transmission Date: 20140127
  Serious: No
  Sender: FDA-Public Use
  Company Number: US-009507513-1210USA000071

PATIENT
  Age: 58 Year
  Sex: Male

DRUGS (2)
  1. INTRONA [Suspect]
  2. BCG VACCINE USP [Suspect]
     Indication: BLADDER CANCER

REACTIONS (6)
  - Penile pain [Unknown]
  - Dysuria [Unknown]
  - Drug dose omission [Unknown]
  - No adverse event [Unknown]
  - Product packaging issue [Unknown]
  - Product quality issue [Unknown]
